FAERS Safety Report 7353269-8 (Version None)
Quarter: 2011Q1

REPORT INFORMATION
  Report Type: 
  Country: None (occurrence: None)
  Receive Date: 20110315
  Receipt Date: 20110301
  Transmission Date: 20110831
  Serious: Yes (Death)
  Sender: FDA-Public Use
  Company Number: US-ACTELION-A-US2011-44988

PATIENT

DRUGS (10)
  1. OXYCODONE [Concomitant]
  2. CAPOTEN [Concomitant]
  3. REVATIO [Concomitant]
  4. CARDIZEM [Concomitant]
  5. TRACLEER [Suspect]
     Indication: PULMONARY ARTERIAL HYPERTENSION
     Dosage: 125 MG, BID
     Route: 048
     Dates: start: 20100611
  6. TRACLEER [Suspect]
     Dosage: 62.5 MG, BID
     Route: 048
     Dates: start: 20100511
  7. PROTONIX [Concomitant]
  8. AMBIEN [Concomitant]
  9. CELEXA [Concomitant]
  10. CATAPRES [Concomitant]

REACTIONS (8)
  - PLATELET COUNT DECREASED [None]
  - PNEUMONIA [None]
  - ABDOMINAL PAIN [None]
  - ISCHAEMIC HEPATITIS [None]
  - INTESTINAL ISCHAEMIA [None]
  - SYSTEMIC INFLAMMATORY RESPONSE SYNDROME [None]
  - HYPOGLYCAEMIA [None]
  - LIVER FUNCTION TEST ABNORMAL [None]
